FAERS Safety Report 14309455 (Version 2)
Quarter: 2018Q2

REPORT INFORMATION
  Report Type: Report from Study
  Country: US (occurrence: US)
  Receive Date: 20171220
  Receipt Date: 20180501
  Transmission Date: 20180711
  Serious: Yes (Death)
  Sender: FDA-Public Use
  Company Number: US-SA-2017SA252058

PATIENT
  Age: 38 Year
  Sex: Female

DRUGS (1)
  1. LEMTRADA [Suspect]
     Active Substance: ALEMTUZUMAB
     Indication: MULTIPLE SCLEROSIS
     Route: 041
     Dates: start: 20170925, end: 20170929

REACTIONS (3)
  - Pulmonary embolism [Fatal]
  - Deep vein thrombosis [Fatal]
  - Foot fracture [Unknown]

NARRATIVE: CASE EVENT DATE: 2017
